FAERS Safety Report 7138030-1 (Version None)
Quarter: 2010Q4

REPORT INFORMATION
  Report Type: 
  Country: None (occurrence: None)
  Receive Date: 20101206
  Receipt Date: 20101126
  Transmission Date: 20110411
  Serious: Yes (Hospitalization)
  Sender: FDA-Public Use
  Company Number: FR-PFIZER INC-2009176818

PATIENT
  Age: 23 Year
  Sex: Male

DRUGS (3)
  1. AZITHROMYCIN [Suspect]
     Indication: OROPHARYNGEAL PAIN
     Route: 048
     Dates: start: 20081211, end: 20081213
  2. PARACETAMOL [Suspect]
     Route: 048
     Dates: start: 20081211, end: 20081201
  3. IBUPROFEN [Suspect]
     Route: 048
     Dates: start: 20081211, end: 20081215

REACTIONS (1)
  - MENINGITIS VIRAL [None]
